FAERS Safety Report 16416031 (Version 2)
Quarter: 2019Q2

REPORT INFORMATION
  Report Type: Spontaneous
  Country: DE (occurrence: DE)
  Receive Date: 20190611
  Receipt Date: 20190612
  Transmission Date: 20190711
  Serious: Yes (Hospitalization)
  Sender: FDA-Public Use
  Company Number: DE-JNJFOC-20190613050

PATIENT
  Age: 70 Year
  Sex: Male
  Weight: 75 kg

DRUGS (2)
  1. ASPIRIN. [Concomitant]
     Active Substance: ASPIRIN
     Route: 048
  2. XARELTO [Suspect]
     Active Substance: RIVAROXABAN
     Indication: CORONARY ARTERY DISEASE
     Route: 048
     Dates: start: 20181010

REACTIONS (5)
  - Sensory level abnormal [Recovered/Resolved]
  - Haematoma muscle [Recovered/Resolved]
  - Traumatic haematoma [Unknown]
  - Peripheral swelling [Recovered/Resolved]
  - Gingival bleeding [Unknown]
